FAERS Safety Report 4662370-9 (Version None)
Quarter: 2005Q2

REPORT INFORMATION
  Report Type: 
  Country: None (occurrence: None)
  Receive Date: 20050512
  Receipt Date: 20050426
  Transmission Date: 20051028
  Serious: Yes (Death)
  Sender: FDA-Public Use
  Company Number: USA050291922

PATIENT
  Age: 97 Year
  Sex: Female

DRUGS (2)
  1. ZYPREXA [Suspect]
     Indication: DELUSION
     Dosage: 5 MG DAY
     Dates: start: 19980101
  2. ZYPREXA [Suspect]
     Indication: DEMENTIA
     Dosage: 5 MG DAY
     Dates: start: 19980101

REACTIONS (1)
  - DEATH [None]
